FAERS Safety Report 7537641-9 (Version None)
Quarter: 2011Q2

REPORT INFORMATION
  Report Type: 
  Country: None (occurrence: None)
  Receive Date: 20110609
  Receipt Date: 20070702
  Transmission Date: 20111010
  Serious: Yes (Death)
  Sender: FDA-Public Use
  Company Number: PHFR2007GB01720

PATIENT
  Sex: Male

DRUGS (10)
  1. CLOZAPINE [Suspect]
     Indication: SCHIZOPHRENIA
     Dosage: 100 MG, QD
     Route: 048
     Dates: start: 19970417
  2. HYDROXYZINE [Concomitant]
     Dosage: 10 MG, QD
     Route: 048
  3. SENNA-MINT WAF [Concomitant]
     Dosage: 100 ML, QD
     Route: 048
  4. SIMVASTATIN [Concomitant]
     Dosage: 40 MG, QD
     Route: 048
  5. MOVIPREP [Concomitant]
     Dosage: UNK
     Route: 048
  6. ACETAMINOPHEN [Concomitant]
     Dosage: 500 MG, QID
     Route: 048
  7. ASPIRIN [Concomitant]
     Dosage: 75 MG, QD
     Route: 048
  8. CO-AMILOFRUSE [Concomitant]
     Dosage: 1 DF, QD
     Route: 048
  9. CLOZAPINE [Suspect]
     Dosage: 25 MG, BID
     Route: 048
  10. VITAMIN B NOS [Concomitant]
     Dosage: 1 DF, QD
     Route: 048

REACTIONS (1)
  - PNEUMONIA [None]
